FAERS Safety Report 7536051-8 (Version None)
Quarter: 2011Q2

REPORT INFORMATION
  Report Type: 
  Country: None (occurrence: None)
  Receive Date: 20110607
  Receipt Date: 20110607
  Transmission Date: 20111010
  Serious: No
  Sender: FDA-Public Use
  Company Number: None

PATIENT

DRUGS (1)
  1. ALPRAZOLAM [Suspect]

REACTIONS (7)
  - PRODUCT PHYSICAL ISSUE [None]
  - PALPITATIONS [None]
  - HEADACHE [None]
  - COUNTERFEIT DRUG ADMINISTERED [None]
  - PRODUCT TASTE ABNORMAL [None]
  - PRODUCT PACKAGING COUNTERFEIT [None]
  - PRODUCT MEASURED POTENCY ISSUE [None]
